FAERS Safety Report 21547464 (Version 1)
Quarter: 2022Q4

REPORT INFORMATION
  Report Type: Spontaneous
  Country: US (occurrence: None)
  Receive Date: 20221102
  Receipt Date: 20221102
  Transmission Date: 20230112
  Serious: Yes (Hospitalization)
  Sender: FDA-Public Use
  Company Number: None

PATIENT
  Sex: Male
  Weight: 50.3 kg

DRUGS (2)
  1. CARBOPLATIN [Suspect]
     Active Substance: CARBOPLATIN
     Dates: end: 20221026
  2. TAXOL [Suspect]
     Active Substance: PACLITAXEL
     Dates: end: 20221026

REACTIONS (3)
  - Abdominal pain [None]
  - Hypophagia [None]
  - Abdominal distension [None]

NARRATIVE: CASE EVENT DATE: 20221030
